FAERS Safety Report 4425652-1 (Version None)
Quarter: 2004Q3

REPORT INFORMATION
  Report Type: 
  Country: None (occurrence: None)
  Receive Date: 20040809
  Receipt Date: 20040730
  Transmission Date: 20050211
  Serious: Yes (Other)
  Sender: FDA-Public Use
  Company Number: S04-USA-03696-01

PATIENT
  Age: 67 Year
  Sex: Male
  Weight: 82.1011 kg

DRUGS (4)
  1. LEXAPRO [Suspect]
     Indication: ANXIETY
     Dates: end: 20040602
  2. BEXTRA [Concomitant]
  3. LOVASTATIN [Concomitant]
  4. XANAX [Concomitant]

REACTIONS (1)
  - HYPONATRAEMIA [None]
